FAERS Safety Report 10397120 (Version 2)
Quarter: 2014Q4

REPORT INFORMATION
  Report Type: Other
  Country: GB (occurrence: GB)
  Receive Date: 20140820
  Receipt Date: 20141118
  Transmission Date: 20150528
  Serious: Yes (Hospitalization, Other)
  Sender: FDA-Public Use
  Company Number: GB-PERRIGO-14GB007925

PATIENT
  Age: 71 Year
  Sex: Male

DRUGS (7)
  1. MORPHINE SULPHATE [Suspect]
     Active Substance: MORPHINE SULFATE
     Indication: BACK PAIN
     Dosage: 40 MG, QD
     Route: 048
     Dates: end: 20140626
  2. CLOPIDOGREL [Concomitant]
     Active Substance: CLOPIDOGREL BISULFATE
     Indication: PRODUCT USED FOR UNKNOWN INDICATION
     Dosage: 75 MG, QD
     Route: 048
  3. METFORMIN [Concomitant]
     Active Substance: METFORMIN HYDROCHLORIDE
     Indication: PRODUCT USED FOR UNKNOWN INDICATION
     Dosage: 500 MG, BID
     Route: 065
  4. IBUPROFEN 16028/0027 200 MG [Suspect]
     Active Substance: IBUPROFEN
     Indication: BACK PAIN
     Dosage: 400 MG, TID
     Route: 048
     Dates: end: 20140626
  5. PREGABALIN. [Suspect]
     Active Substance: PREGABALIN
     Indication: NEURALGIA
     Dosage: 300 MG, QD
     Route: 048
     Dates: end: 20140626
  6. AMITRIPTYLINE [Concomitant]
     Active Substance: AMITRIPTYLINE
     Indication: PRODUCT USED FOR UNKNOWN INDICATION
     Dosage: 30 MG, QD
     Route: 065
  7. ATORVASTATIN [Concomitant]
     Active Substance: ATORVASTATIN
     Indication: PRODUCT USED FOR UNKNOWN INDICATION
     Dosage: 80 MG, QD
     Route: 065

REACTIONS (12)
  - Nephrolithiasis [Unknown]
  - Dehydration [Unknown]
  - Sepsis [None]
  - Abdominal pain [Unknown]
  - Toxicity to various agents [Unknown]
  - Diarrhoea [Recovered/Resolved]
  - Vomiting [Unknown]
  - Somnolence [Recovered/Resolved]
  - Urinary retention [Unknown]
  - Prostatomegaly [None]
  - Acute kidney injury [Recovered/Resolved]
  - Haemoglobin decreased [None]

NARRATIVE: CASE EVENT DATE: 20140626
